FAERS Safety Report 4505842-X (Version None)
Quarter: 2004Q4

REPORT INFORMATION
  Report Type: 
  Country: None (occurrence: None)
  Receive Date: 20041025
  Receipt Date: 20040618
  Transmission Date: 20050328
  Serious: Yes (Hospitalization)
  Sender: FDA-Public Use
  Company Number: US-JNJFOC-20040304946

PATIENT
  Age: 46 Year
  Sex: Male
  Weight: 90.7194 kg

DRUGS (7)
  1. REMICADE [Suspect]
     Indication: ANKYLOSING SPONDYLITIS
     Dosage: 3 MG/KG, INTRAVENOUS; SEE IMAGE
     Route: 042
     Dates: start: 20031218, end: 20031218
  2. REMICADE [Suspect]
     Indication: ANKYLOSING SPONDYLITIS
     Dosage: 3 MG/KG, INTRAVENOUS; SEE IMAGE
     Route: 042
     Dates: start: 20031009
  3. REMICADE [Suspect]
     Indication: ANKYLOSING SPONDYLITIS
     Dosage: 3 MG/KG, INTRAVENOUS; SEE IMAGE
     Route: 042
     Dates: start: 20031021
  4. REMICADE [Suspect]
     Indication: ANKYLOSING SPONDYLITIS
     Dosage: 3 MG/KG, INTRAVENOUS; SEE IMAGE
     Route: 042
     Dates: start: 20031119
  5. ARTHROTEC (ARTHROTEC) TABLETS [Concomitant]
  6. ASACOL (MESALAZINE) TABLETS [Concomitant]
  7. BEER (ALL OTHER THERAPEUTIC PRODUCTS) [Concomitant]

REACTIONS (1)
  - PULMONARY TUBERCULOSIS [None]
